FAERS Safety Report 10013942 (Version 1)
Quarter: 2014Q1

REPORT INFORMATION
  Report Type: Spontaneous
  Country: US (occurrence: US)
  Receive Date: 20140316
  Receipt Date: 20140316
  Transmission Date: 20141002
  Serious: Yes (Other)
  Sender: FDA-Public Use
  Company Number: US-LUNDBECK-DKLU1096750

PATIENT
  Age: 18 Year
  Sex: Male

DRUGS (2)
  1. ONFI [Suspect]
     Indication: COMPLEX PARTIAL SEIZURES
     Route: 048
     Dates: start: 20131120
  2. ONFI [Suspect]
     Route: 048

REACTIONS (1)
  - Grand mal convulsion [Unknown]
